FAERS Safety Report 7979173-X (Version None)
Quarter: 2011Q4

REPORT INFORMATION
  Report Type: 
  Country: None (occurrence: None)
  Receive Date: 20111206
  Receipt Date: 20111201
  Transmission Date: 20120403
  Serious: Yes (Hospitalization, Other)
  Sender: FDA-Public Use
  Company Number: 2011SP025614

PATIENT
  Age: 31 Year
  Sex: Female
  Weight: 61.2356 kg

DRUGS (1)
  1. NUVARING [Suspect]
     Indication: MENSTRUATION IRREGULAR
     Dates: start: 20090518, end: 20090601

REACTIONS (17)
  - DEEP VEIN THROMBOSIS [None]
  - MYALGIA [None]
  - FATIGUE [None]
  - ALOPECIA [None]
  - INFUSION SITE SWELLING [None]
  - PARAESTHESIA [None]
  - PAIN IN EXTREMITY [None]
  - FOOD CRAVING [None]
  - PULMONARY EMBOLISM [None]
  - HYPERCHLORHYDRIA [None]
  - INCISION SITE PAIN [None]
  - LEUKOPENIA [None]
  - STRESS [None]
  - PALPITATIONS [None]
  - FAECES DISCOLOURED [None]
  - DIZZINESS [None]
  - SMALL INTESTINAL OBSTRUCTION [None]
